FAERS Safety Report 10942030 (Version 2)
Quarter: 2015Q2

REPORT INFORMATION
  Report Type: Spontaneous
  Country: US (occurrence: US)
  Receive Date: 20150322
  Receipt Date: 20150524
  Transmission Date: 20150821
  Serious: Yes (Hospitalization)
  Sender: FDA-Public Use
  Company Number: US-JNJFOC-20140616800

PATIENT
  Age: 61 Year
  Sex: Male

DRUGS (15)
  1. TRAZODONE [Concomitant]
     Active Substance: TRAZODONE HYDROCHLORIDE
  2. METOPROLOL [Concomitant]
     Active Substance: METOPROLOL
  3. INVOKANA [Suspect]
     Active Substance: CANAGLIFLOZIN
     Indication: TYPE 2 DIABETES MELLITUS
     Route: 048
     Dates: start: 20140304, end: 20140605
  4. JANUMET [Concomitant]
     Active Substance: METFORMIN HYDROCHLORIDE\SITAGLIPTIN PHOSPHATE
  5. FLOMAX [Concomitant]
     Active Substance: TAMSULOSIN HYDROCHLORIDE
  6. AMBIEN [Concomitant]
     Active Substance: ZOLPIDEM TARTRATE
  7. LISINOPRIL. [Concomitant]
     Active Substance: LISINOPRIL
  8. CLONAZEPAM. [Concomitant]
     Active Substance: CLONAZEPAM
  9. ZETIA [Concomitant]
     Active Substance: EZETIMIBE
  10. TRAMADOL [Concomitant]
     Active Substance: TRAMADOL
  11. OMEPRAZOLE. [Concomitant]
     Active Substance: OMEPRAZOLE
  12. LIPITOR [Concomitant]
     Active Substance: ATORVASTATIN CALCIUM
  13. HYDRALAZINE [Concomitant]
     Active Substance: HYDRALAZINE HYDROCHLORIDE
  14. SEROQUEL [Concomitant]
     Active Substance: QUETIAPINE FUMARATE
  15. CELEXA [Concomitant]
     Active Substance: CITALOPRAM HYDROBROMIDE

REACTIONS (1)
  - Pancreatitis [Recovered/Resolved]
